FAERS Safety Report 15757294 (Version 1)
Quarter: 2018Q4

REPORT INFORMATION
  Report Type: Spontaneous
  Country: CN (occurrence: CN)
  Receive Date: 20181224
  Receipt Date: 20181224
  Transmission Date: 20190205
  Serious: Yes (Hospitalization, Other)
  Sender: FDA-Public Use
  Company Number: CN-GILEAD-2018-0381715

PATIENT
  Age: 53 Year
  Sex: Male

DRUGS (8)
  1. BENAZEPRIL [Concomitant]
     Active Substance: BENAZEPRIL HYDROCHLORIDE
     Indication: PROTEIN URINE PRESENT
  2. CORDYCEPS AKTIV [Concomitant]
     Indication: PROPHYLAXIS
  3. BENAZEPRIL [Concomitant]
     Active Substance: BENAZEPRIL HYDROCHLORIDE
     Indication: PROPHYLAXIS
  4. BENAZEPRIL [Concomitant]
     Active Substance: BENAZEPRIL HYDROCHLORIDE
     Indication: CHRONIC KIDNEY DISEASE
     Dosage: 10 MG, QD
     Route: 048
  5. ADEFOVIR DIPIVOXIL. [Suspect]
     Active Substance: ADEFOVIR DIPIVOXIL
     Indication: CHRONIC HEPATITIS B
     Dosage: 10 MG, QD
     Route: 048
     Dates: start: 2008
  6. CORDYCEPS AKTIV [Concomitant]
     Indication: CHRONIC KIDNEY DISEASE
     Dosage: 4 UNITS TID
     Route: 048
  7. CORDYCEPS AKTIV [Concomitant]
     Indication: PROTEIN URINE PRESENT
  8. ENTECAVIR. [Concomitant]
     Active Substance: ENTECAVIR
     Indication: CHRONIC HEPATITIS B
     Dosage: 0.5 MG, QD
     Dates: start: 2016

REACTIONS (13)
  - Fanconi syndrome [Recovered/Resolved]
  - Osteomalacia [Recovered/Resolved]
  - Glucose urine present [Recovered/Resolved]
  - Arthralgia [Recovered/Resolved]
  - Exercise tolerance decreased [Recovered/Resolved]
  - Osteoporosis [Recovered/Resolved]
  - Bone pain [Recovered/Resolved]
  - Pain [Recovered/Resolved]
  - Hypophosphataemia [Recovered/Resolved]
  - Asthenia [Recovered/Resolved]
  - Kyphosis [Recovered/Resolved]
  - Patellofemoral pain syndrome [Recovered/Resolved]
  - Gait disturbance [Recovered/Resolved]

NARRATIVE: CASE EVENT DATE: 2015
